FAERS Safety Report 8417702-2 (Version None)
Quarter: 2012Q2

REPORT INFORMATION
  Report Type: 
  Country: None (occurrence: None)
  Receive Date: 20120607
  Receipt Date: 20120531
  Transmission Date: 20120825
  Serious: Yes (Hospitalization)
  Sender: FDA-Public Use
  Company Number: US-AMGEN-USASP2012034195

PATIENT
  Age: 55 Year
  Sex: Female

DRUGS (2)
  1. METHOTREXATE [Concomitant]
     Dosage: UNK
  2. ENBREL [Suspect]
     Indication: RHEUMATOID ARTHRITIS
     Dosage: 50 MG, QWK
     Dates: start: 20000101

REACTIONS (11)
  - JOINT SWELLING [None]
  - PSYCHOMOTOR HYPERACTIVITY [None]
  - DIARRHOEA [None]
  - RASH [None]
  - PRURITUS [None]
  - KNEE ARTHROPLASTY [None]
  - ARTHRALGIA [None]
  - GAIT DISTURBANCE [None]
  - HYPERHIDROSIS [None]
  - RHEUMATOID ARTHRITIS [None]
  - MOBILITY DECREASED [None]
